FAERS Safety Report 7315065-7 (Version None)
Quarter: 2011Q1

REPORT INFORMATION
  Report Type: 
  Country: None (occurrence: None)
  Receive Date: 20110225
  Receipt Date: 20100329
  Transmission Date: 20110831
  Serious: Yes (Other)
  Sender: FDA-Public Use
  Company Number: US-MYLANLABS-2010S1005160

PATIENT
  Age: 20 Year
  Sex: Female

DRUGS (3)
  1. ORAL CONTRACEPTIVE NOS [Concomitant]
     Indication: CONTRACEPTION
  2. AMNESTEEM [Suspect]
     Route: 048
     Dates: end: 20100320
  3. CLARAVIS [Suspect]
     Indication: ACNE

REACTIONS (1)
  - RECTAL HAEMORRHAGE [None]
